FAERS Safety Report 22350341 (Version 1)
Quarter: 2023Q2

REPORT INFORMATION
  Report Type: Spontaneous
  Country: TR (occurrence: TR)
  Receive Date: 20230522
  Receipt Date: 20230522
  Transmission Date: 20230722
  Serious: Yes (Hospitalization)
  Sender: FDA-Public Use
  Company Number: TR-LGC-012006

PATIENT
  Age: 48 Year
  Sex: Female
  Weight: 60 kg

DRUGS (5)
  1. FACTIVE [Suspect]
     Active Substance: GEMIFLOXACIN MESYLATE
     Indication: Bronchitis
     Route: 048
     Dates: start: 20230505, end: 20230511
  2. Otrivine Menthol 1 mg/ml dosed nasal spray (Xylometazoline hydrochl... [Concomitant]
  3. AIRCOMB 5/10 mg film-coated tablet (Desloratadine, montelukast) [Concomitant]
  4. NAC-C 900 mg/300 mg effervescent tablet (Acetylcysteine, Ascorbic a... [Concomitant]
  5. RINOCLENIL? 100 micrograms nasal spray, suspension (Beclomethasone ... [Concomitant]

REACTIONS (6)
  - Erythema [Not Recovered/Not Resolved]
  - Hypoaesthesia [Not Recovered/Not Resolved]
  - Hypoaesthesia [Not Recovered/Not Resolved]
  - Vision blurred [Not Recovered/Not Resolved]
  - Hypoaesthesia oral [Not Recovered/Not Resolved]
  - Hypoaesthesia [Not Recovered/Not Resolved]

NARRATIVE: CASE EVENT DATE: 20230513
